FAERS Safety Report 6719068-2 (Version None)
Quarter: 2010Q2

REPORT INFORMATION
  Report Type: 
  Country: None (occurrence: None)
  Receive Date: 20100511
  Receipt Date: 20100430
  Transmission Date: 20101027
  Serious: Yes (Other)
  Sender: FDA-Public Use
  Company Number: CA-JNJFOC-20100500884

PATIENT
  Sex: Female
  Weight: 89.5 kg

DRUGS (2)
  1. REMICADE [Suspect]
     Indication: CROHN'S DISEASE
     Route: 042
  2. UNSPECIFIED SLEEPING AGENTS [Concomitant]

REACTIONS (3)
  - DIZZINESS [None]
  - INFUSION RELATED REACTION [None]
  - SENSATION OF HEAVINESS [None]
